FAERS Safety Report 5672924-9 (Version None)
Quarter: 2008Q1

REPORT INFORMATION
  Report Type: 
  Country: None (occurrence: None)
  Receive Date: 20080319
  Receipt Date: 20071112
  Transmission Date: 20080703
  Serious: No
  Sender: FDA-Public Use
  Company Number: US-ASTRAZENECA-2007UW26271

PATIENT
  Age: 80 Year
  Sex: Female

DRUGS (6)
  1. SYMBICORT [Suspect]
     Indication: CHRONIC OBSTRUCTIVE PULMONARY DISEASE
     Dosage: 80/4.5 UG
     Route: 055
     Dates: start: 20071101
  2. COMBIVENT [Concomitant]
  3. NORVASC [Concomitant]
  4. TOPROL [Concomitant]
  5. AVAPRO [Concomitant]
  6. DRY EYE PRODUCT [Concomitant]

REACTIONS (1)
  - DRY EYE [None]
